FAERS Safety Report 18877895 (Version 2)
Quarter: 2021Q3

REPORT INFORMATION
  Report Type: Report from Study
  Country: EG (occurrence: EG)
  Receive Date: 20210211
  Receipt Date: 20210710
  Transmission Date: 20211014
  Serious: Yes (Death, Hospitalization, Other)
  Sender: FDA-Public Use
  Company Number: NVSC2021EG029272

PATIENT
  Age: 71 Year
  Sex: Female

DRUGS (12)
  1. KISQALI [Suspect]
     Active Substance: RIBOCICLIB
     Dosage: 1 DF, QD
     Route: 065
     Dates: start: 20210119
  2. FASLODEX [Suspect]
     Active Substance: FULVESTRANT
     Indication: PRODUCT USED FOR UNKNOWN INDICATION
     Dosage: UNK
     Route: 065
     Dates: end: 20210119
  3. AROMASIN [Concomitant]
     Active Substance: EXEMESTANE
     Dosage: 1 DF, QD
     Route: 065
     Dates: start: 20201010, end: 20210424
  4. KISQALI [Suspect]
     Active Substance: RIBOCICLIB
     Indication: METASTASES TO BONE
     Dosage: 600 MG, QD (3 TABS PER DAY)
     Route: 065
  5. KISQALI [Suspect]
     Active Substance: RIBOCICLIB
     Dosage: 200 MG, QD (ONE TAB PER DAY)
     Route: 065
  6. KISQALI [Suspect]
     Active Substance: RIBOCICLIB
     Dosage: 1 DF, QD
     Route: 048
     Dates: start: 2017, end: 20210424
  7. KISQALI [Suspect]
     Active Substance: RIBOCICLIB
     Indication: BREAST CANCER METASTATIC
     Dosage: 1 DF, QD (STOPPED LATE 2018 OR 2019)
     Route: 065
     Dates: start: 201712
  8. AROMASIN [Concomitant]
     Active Substance: EXEMESTANE
     Indication: PRODUCT USED FOR UNKNOWN INDICATION
     Dosage: 1 DF (AFTER LUNCH)
     Route: 065
     Dates: start: 20200119
  9. KISQALI [Suspect]
     Active Substance: RIBOCICLIB
     Dosage: 400 MG, QD (2 TAB PER DAY)
     Route: 065
  10. FASLODEX [Suspect]
     Active Substance: FULVESTRANT
     Dosage: 1 SYRING/MONTH
     Route: 065
     Dates: start: 2019
  11. NAVELBINE [Suspect]
     Active Substance: VINORELBINE TARTRATE
     Indication: PRODUCT USED FOR UNKNOWN INDICATION
     Dosage: 50 UNK
     Route: 042
  12. VENTOLINE [Concomitant]
     Active Substance: ALBUTEROL
     Indication: PRODUCT USED FOR UNKNOWN INDICATION
     Dosage: UNK, PRN (SPRAY)
     Route: 065

REACTIONS (19)
  - Bacteraemia [Fatal]
  - Abdominal distension [Recovered/Resolved]
  - Blood creatinine increased [Recovered/Resolved]
  - Ascites [Fatal]
  - Nausea [Recovered/Resolved]
  - Blood creatinine increased [Not Recovered/Not Resolved]
  - Haemoglobin decreased [Recovered/Resolved]
  - Decreased appetite [Recovered/Resolved]
  - Fatigue [Not Recovered/Not Resolved]
  - Metastases to peritoneum [Not Recovered/Not Resolved]
  - Nausea [Recovered/Resolved]
  - Hypotension [Fatal]
  - Urinary retention [Unknown]
  - Diaphragmatic disorder [Unknown]
  - Constipation [Recovered/Resolved]
  - Septic shock [Fatal]
  - Renal disorder [Recovered/Resolved]
  - Nausea [Not Recovered/Not Resolved]
  - Abdominal pain upper [Recovered/Resolved]

NARRATIVE: CASE EVENT DATE: 2017
